FAERS Safety Report 9731625 (Version 1)
Quarter: 2013Q4

REPORT INFORMATION
  Report Type: Spontaneous
  Country: US (occurrence: None)
  Receive Date: 20131204
  Receipt Date: 20131204
  Transmission Date: 20140711
  Serious: Yes (Hospitalization)
  Sender: FDA-Public Use
  Company Number: None

PATIENT
  Age: 70 Year
  Sex: Male
  Weight: 90.72 kg

DRUGS (4)
  1. METOPROLOL TARTRATE [Suspect]
     Indication: BLOOD PRESSURE
     Dates: start: 20130913, end: 20131115
  2. AMLODIPINE BESYLATE [Concomitant]
  3. MULTIVITAMIN [Concomitant]
  4. VIT C [Concomitant]

REACTIONS (8)
  - Feeling abnormal [None]
  - Asthenia [None]
  - Decreased appetite [None]
  - Ageusia [None]
  - Myalgia [None]
  - Pain [None]
  - Abasia [None]
  - Insomnia [None]
